FAERS Safety Report 9134443 (Version 1)
Quarter: 2013Q1

REPORT INFORMATION
  Report Type: Spontaneous
  Country: RU (occurrence: RU)
  Receive Date: 20130304
  Receipt Date: 20130304
  Transmission Date: 20140127
  Serious: Yes (Other)
  Sender: FDA-Public Use
  Company Number: RU-UCBSA-079499

PATIENT
  Age: 52 Year
  Sex: Female

DRUGS (2)
  1. CIMZIA [Suspect]
     Indication: RHEUMATOID ARTHRITIS
     Dosage: 3 INJECTIONS
     Route: 058
     Dates: start: 2012
  2. PREDNISOLONE [Concomitant]
     Dosage: UNKNOWN DOSE

REACTIONS (1)
  - Rash [Recovered/Resolved]
